FAERS Safety Report 14537084 (Version 1)
Quarter: 2018Q1

REPORT INFORMATION
  Report Type: Spontaneous
  Country: FR (occurrence: FR)
  Receive Date: 20180215
  Receipt Date: 20180215
  Transmission Date: 20180509
  Serious: Yes (Other)
  Sender: FDA-Public Use
  Company Number: PHHY2018FR024403

PATIENT
  Age: 65 Year
  Sex: Female

DRUGS (2)
  1. AMOXICILLINE/ACIDE CLAVULANIQUE SANDOZ [Suspect]
     Active Substance: AMOXICILLIN\CLAVULANIC ACID
     Indication: TOOTH ABSCESS
     Dosage: 1 DF, TOTAL
     Route: 048
     Dates: start: 20171215
  2. IBUPROFEN. [Suspect]
     Active Substance: IBUPROFEN
     Indication: TOOTH ABSCESS
     Dosage: 400 MG, TOTAL
     Route: 048
     Dates: start: 20171215

REACTIONS (4)
  - Hot flush [Recovered/Resolved]
  - Swelling face [Recovered/Resolved]
  - Palpitations [Recovered/Resolved]
  - Formication [Recovered/Resolved]

NARRATIVE: CASE EVENT DATE: 20171215
